FAERS Safety Report 6247568-0 (Version None)
Quarter: 2009Q2

REPORT INFORMATION
  Report Type: 
  Country: None (occurrence: None)
  Receive Date: 20090626
  Receipt Date: 20090622
  Transmission Date: 20091009
  Serious: Yes (Hospitalization, Disabling)
  Sender: FDA-Public Use
  Company Number: US-MERCK-0906USA04049

PATIENT
  Age: 50 Year
  Sex: Female

DRUGS (6)
  1. ISENTRESS [Suspect]
     Indication: HIV INFECTION
     Route: 048
  2. RITONAVIR [Concomitant]
     Route: 065
  3. DARUNAVIR [Concomitant]
     Route: 065
  4. MARAVIROC [Concomitant]
     Route: 065
  5. INTELENCE [Concomitant]
     Route: 065
  6. EMTRIVA [Concomitant]
     Route: 065

REACTIONS (3)
  - BLOOD CREATININE INCREASED [None]
  - GLOMERULAR FILTRATION RATE DECREASED [None]
  - RESPIRATORY DISORDER [None]
